FAERS Safety Report 18434791 (Version 4)
Quarter: 2022Q4

REPORT INFORMATION
  Report Type: Report from Study
  Country: US (occurrence: US)
  Receive Date: 20201027
  Receipt Date: 20221124
  Transmission Date: 20230113
  Serious: Yes (Other)
  Sender: FDA-Public Use
  Company Number: US-JAZZ-2020-US-011443

PATIENT
  Sex: Female

DRUGS (28)
  1. XYREM [Suspect]
     Active Substance: SODIUM OXYBATE
     Indication: Narcolepsy
     Dosage: 2.25 GRAM, BID
     Route: 048
     Dates: start: 200710, end: 200711
  2. XYREM [Suspect]
     Active Substance: SODIUM OXYBATE
     Indication: Cataplexy
     Dosage: DOSE ADJUSTMENT
     Route: 048
     Dates: start: 200711, end: 201103
  3. XYREM [Suspect]
     Active Substance: SODIUM OXYBATE
     Indication: Somnolence
     Dosage: 4 GRAM, BID
     Route: 048
     Dates: start: 201103, end: 201104
  4. XYREM [Suspect]
     Active Substance: SODIUM OXYBATE
     Dosage: 2.25 GRAM, BID
     Route: 048
     Dates: start: 201301, end: 201304
  5. XYREM [Suspect]
     Active Substance: SODIUM OXYBATE
     Dosage: 4.5 GRAM, BID
     Route: 048
     Dates: start: 201304, end: 201706
  6. XYREM [Suspect]
     Active Substance: SODIUM OXYBATE
     Dosage: 2.25 GRAM, BID
     Route: 048
     Dates: start: 202002, end: 202002
  7. XYREM [Suspect]
     Active Substance: SODIUM OXYBATE
     Dosage: DOSE ADJUSTMENT
     Route: 048
     Dates: start: 202002, end: 202004
  8. XYREM [Suspect]
     Active Substance: SODIUM OXYBATE
     Dosage: 4.25 GRAM, BID
     Route: 048
     Dates: start: 202004
  9. BUPROPION HYDROCHLORIDE [Suspect]
     Active Substance: BUPROPION HYDROCHLORIDE
     Indication: Feeling abnormal
     Dosage: UNK
     Dates: end: 201804
  10. CYANOCOBALAMIN [Concomitant]
     Active Substance: CYANOCOBALAMIN
     Indication: Product used for unknown indication
     Dosage: 1000 MICROGRAM/MILLIGRAM
     Dates: start: 20160831
  11. ADDERALL [Concomitant]
     Active Substance: AMPHETAMINE ASPARTATE\AMPHETAMINE SULFATE\DEXTROAMPHETAMINE SACCHARATE\DEXTROAMPHETAMINE SULFATE
     Indication: Product used for unknown indication
     Dosage: 20 MG
     Dates: start: 20151103, end: 202008
  12. ADDERALL [Concomitant]
     Active Substance: AMPHETAMINE ASPARTATE\AMPHETAMINE SULFATE\DEXTROAMPHETAMINE SACCHARATE\DEXTROAMPHETAMINE SULFATE
     Dosage: 10 MG
  13. ADDERALL [Concomitant]
     Active Substance: AMPHETAMINE ASPARTATE\AMPHETAMINE SULFATE\DEXTROAMPHETAMINE SACCHARATE\DEXTROAMPHETAMINE SULFATE
     Dosage: 5 MG
  14. ADDERALL [Concomitant]
     Active Substance: AMPHETAMINE ASPARTATE\AMPHETAMINE SULFATE\DEXTROAMPHETAMINE SACCHARATE\DEXTROAMPHETAMINE SULFATE
     Dosage: 30 MG
  15. PROVIGIL [Concomitant]
     Active Substance: MODAFINIL
     Indication: Product used for unknown indication
     Dosage: UNK
     Dates: start: 20151123, end: 20151123
  16. EXCEDRIN MIGRAINE [Concomitant]
     Active Substance: ACETAMINOPHEN\ASPIRIN\CAFFEINE
     Indication: Product used for unknown indication
     Dosage: UNK
     Dates: start: 200001
  17. FLONASE ALLERGY RELIEF [Concomitant]
     Active Substance: FLUTICASONE PROPIONATE
     Indication: Product used for unknown indication
  18. INJECTAFER [Concomitant]
     Active Substance: FERRIC CARBOXYMALTOSE
     Indication: Product used for unknown indication
     Dosage: 750 MG/15 ML
  19. MELOXICAM [Concomitant]
     Active Substance: MELOXICAM
     Indication: Product used for unknown indication
     Dosage: UNK
     Dates: end: 202008
  20. NEXPLANON [Concomitant]
     Active Substance: ETONOGESTREL
     Indication: Product used for unknown indication
  21. CHANTIX [Concomitant]
     Active Substance: VARENICLINE TARTRATE
     Indication: Product used for unknown indication
  22. ONDANSETRON HCL [Concomitant]
     Active Substance: ONDANSETRON HYDROCHLORIDE
     Indication: Product used for unknown indication
  23. TIZANIDINE HYDROCHLORIDE [Concomitant]
     Active Substance: TIZANIDINE HYDROCHLORIDE
     Indication: Product used for unknown indication
     Dosage: UNK
     Dates: end: 202002
  24. WAKIX [Concomitant]
     Active Substance: PITOLISANT HYDROCHLORIDE
     Indication: Product used for unknown indication
     Dosage: UNK
     Dates: end: 202008
  25. WAKIX [Concomitant]
     Active Substance: PITOLISANT HYDROCHLORIDE
     Dosage: 17.8 MG
     Dates: start: 20210501
  26. RIZATRIPTAN [Concomitant]
     Active Substance: RIZATRIPTAN
     Indication: Product used for unknown indication
     Dosage: UNK
     Dates: start: 20220501
  27. EMGALITY [Concomitant]
     Active Substance: GALCANEZUMAB-GNLM
     Indication: Product used for unknown indication
     Dosage: 120MG/ML PEN
     Dates: start: 20221115
  28. VYVANSE [Concomitant]
     Active Substance: LISDEXAMFETAMINE DIMESYLATE
     Indication: Product used for unknown indication
     Dosage: 0000
     Dates: start: 20221001

REACTIONS (10)
  - Gastric bypass [Recovering/Resolving]
  - Seizure [Recovering/Resolving]
  - Migraine [Unknown]
  - Glucose tolerance impaired [Recovered/Resolved]
  - Prehypertension [Recovered/Resolved]
  - Sleep apnoea syndrome [Recovered/Resolved]
  - Headache [Recovering/Resolving]
  - Hypovitaminosis [Unknown]
  - Mineral deficiency [Unknown]
  - Carpal tunnel syndrome [Not Recovered/Not Resolved]

NARRATIVE: CASE EVENT DATE: 20090101
